FAERS Safety Report 18842805 (Version 1)
Quarter: 2021Q1

REPORT INFORMATION
  Report Type: Spontaneous
  Country: US (occurrence: US)
  Receive Date: 20210203
  Receipt Date: 20210203
  Transmission Date: 20210419
  Serious: No
  Sender: FDA-Public Use
  Company Number: US-009507513-2101USA002196

PATIENT
  Age: 76 Year
  Sex: Female

DRUGS (1)
  1. PRINIVIL [Suspect]
     Active Substance: LISINOPRIL
     Indication: PROTEINURIA
     Dosage: 20 MILLIGRAM, QD

REACTIONS (1)
  - Product use in unapproved indication [Unknown]
